FAERS Safety Report 8926597 (Version 2)
Quarter: 2012Q4

REPORT INFORMATION
  Report Type: 
  Country: GB (occurrence: GB)
  Receive Date: 20121127
  Receipt Date: 20121207
  Transmission Date: 20130627
  Serious: Yes (Other)
  Sender: FDA-Public Use
  Company Number: PHHY2012GB107206

PATIENT

DRUGS (1)
  1. MIRTAZAPINE [Suspect]
     Indication: DEPRESSION

REACTIONS (11)
  - Gait disturbance [Unknown]
  - Dysstasia [Unknown]
  - Restless legs syndrome [Unknown]
  - Posture abnormal [Unknown]
  - Coordination abnormal [Unknown]
  - Aggression [Unknown]
  - Malaise [Unknown]
  - Tearfulness [Unknown]
  - Dysphagia [Unknown]
  - Diarrhoea [Unknown]
  - Agitation [Unknown]
